FAERS Safety Report 7772050-9 (Version None)
Quarter: 2011Q3

REPORT INFORMATION
  Report Type: 
  Country: None (occurrence: None)
  Receive Date: 20110922
  Receipt Date: 20110223
  Transmission Date: 20111222
  Serious: Yes (Other)
  Sender: FDA-Public Use
  Company Number: US-ASTRAZENECA-2007UW02012

PATIENT
  Age: 355 Month
  Sex: Female
  Weight: 99.8 kg

DRUGS (26)
  1. FLUOXETINE [Concomitant]
     Dates: start: 20010120
  2. NITROFURANTOIN [Concomitant]
     Dosage: 100 DISPENSED.
     Dates: start: 20020510
  3. SEROQUEL [Suspect]
     Route: 048
     Dates: start: 20020510
  4. RISPERDAL [Concomitant]
     Route: 048
     Dates: start: 20010101, end: 20030101
  5. PERCOCET [Concomitant]
     Dates: start: 20020422
  6. METRONIDAZOLE [Concomitant]
     Dosage: 500 DISPENSED.
     Dates: start: 20021226
  7. RISPERDAL [Concomitant]
     Dates: start: 20010214
  8. PAXIL [Concomitant]
     Dates: start: 20010220
  9. SEPTRA DS [Concomitant]
     Dates: start: 20021114
  10. TIZANIDINE HCL [Concomitant]
     Dosage: 2 DISPENSED.
     Dates: start: 20020917
  11. YASMIN [Concomitant]
     Dosage: 28 DISPENSED.
     Dates: start: 20020828
  12. SEROQUEL [Suspect]
     Indication: BIPOLAR DISORDER
     Dosage: 200 MG - 600 MG
     Route: 048
     Dates: start: 20020404, end: 20030428
  13. EFFEXOR XR [Concomitant]
     Dates: start: 20010214
  14. ZOLOFT [Concomitant]
     Dates: start: 20020510
  15. NAPROXEN SODIUM [Concomitant]
     Dosage: 35-55 DISPENSED.
     Dates: start: 20020919
  16. FLUCONAZOLE [Concomitant]
     Dates: start: 20050819
  17. SEROQUEL [Suspect]
     Route: 048
     Dates: start: 20030428
  18. HYDROCODONE BITARTRATE AND ACETAMINOPHEN [Concomitant]
     Dosage: 5
     Dates: start: 20011231
  19. BUTALBITAL/L/APAP/CA [Concomitant]
     Dates: start: 20020405
  20. REMERON [Concomitant]
     Dates: start: 20020510
  21. PHENAZOPYRIDINE HCL TAB [Concomitant]
     Dates: start: 20021114
  22. SINGULAIR [Concomitant]
     Dates: start: 20021116
  23. TRILEPTAL [Concomitant]
     Dates: start: 20020510
  24. PRENATE ELITE [Concomitant]
     Dosage: 500 DISPENSED.
     Dates: start: 20050812
  25. IBUPROFEN [Concomitant]
     Dates: start: 20011231
  26. BACLOFEN [Concomitant]
     Dates: start: 20020301

REACTIONS (12)
  - FATIGUE [None]
  - RASH [None]
  - FUNGAL INFECTION [None]
  - KIDNEY INFECTION [None]
  - BREAST MASS [None]
  - DIABETES MELLITUS [None]
  - SUICIDAL BEHAVIOUR [None]
  - CERVICITIS [None]
  - HYPERTENSION [None]
  - CONVULSION [None]
  - GASTROENTERITIS [None]
  - PARAESTHESIA [None]
